FAERS Safety Report 13935427 (Version 1)
Quarter: 2017Q3

REPORT INFORMATION
  Report Type: Spontaneous
  Country: US (occurrence: US)
  Receive Date: 20170901
  Receipt Date: 20170901
  Transmission Date: 20171127
  Serious: Yes (Other)
  Sender: FDA-Public Use
  Company Number: None

PATIENT
  Age: 12 Year
  Sex: Female
  Weight: 33.75 kg

DRUGS (3)
  1. HEARTGUARD [Concomitant]
  2. CYCLOSPORINE. [Suspect]
     Active Substance: CYCLOSPORINE
     Indication: ANAL FISTULA
     Dosage: ?          QUANTITY:1 ML;OTHER ROUTE:ORAL?
     Route: 048
     Dates: start: 20170605, end: 20170624
  3. VETPROFEN [Concomitant]

REACTIONS (5)
  - Decreased appetite [None]
  - Asthenia [None]
  - Lethargy [None]
  - General physical health deterioration [None]
  - Muscular weakness [None]

NARRATIVE: CASE EVENT DATE: 20170615
